FAERS Safety Report 16508439 (Version 1)
Quarter: 2019Q3

REPORT INFORMATION
  Report Type: Spontaneous
  Country: US (occurrence: US)
  Receive Date: 20190702
  Receipt Date: 20190702
  Transmission Date: 20191004
  Serious: No
  Sender: FDA-Public Use
  Company Number: US-ROCHE-2290341

PATIENT
  Sex: Male
  Weight: 93.98 kg

DRUGS (4)
  1. AVASTIN [Suspect]
     Active Substance: BEVACIZUMAB
     Indication: COLORECTAL CANCER METASTATIC
     Dosage: 2 WEEKS ON AND OFF THERAPY FOR 1 WEEK ONGOING: YES
     Route: 042
     Dates: start: 2019
  2. XELODA [Suspect]
     Active Substance: CAPECITABINE
     Indication: COLORECTAL CANCER METASTATIC
     Dosage: 2 WEEKS ON AND OFF THERAPY FOR 1 WEEK ONGOING: YES
     Route: 048
     Dates: start: 2019
  3. 5 FLUORO URACIL [Concomitant]
     Active Substance: FLUOROURACIL
     Route: 065
     Dates: start: 20180701
  4. OXALIPLATIN. [Concomitant]
     Active Substance: OXALIPLATIN
     Route: 065
     Dates: start: 20180701

REACTIONS (5)
  - Haemorrhoids [Unknown]
  - Proctalgia [Unknown]
  - Anorectal disorder [Unknown]
  - Constipation [Unknown]
  - Hypertension [Unknown]
